FAERS Safety Report 25032825 (Version 3)
Quarter: 2025Q2

REPORT INFORMATION
  Report Type: Spontaneous
  Country: PT (occurrence: PT)
  Receive Date: 20250303
  Receipt Date: 20250401
  Transmission Date: 20250716
  Serious: Yes (Hospitalization, Other)
  Sender: NOVARTIS
  Company Number: PT-002147023-NVSC2025PT034206

PATIENT
  Age: 62 Year
  Sex: Female

DRUGS (8)
  1. RIBOCICLIB [Suspect]
     Active Substance: RIBOCICLIB
     Indication: Hormone receptor positive HER2 negative breast cancer
     Route: 065
  2. RIBOCICLIB [Suspect]
     Active Substance: RIBOCICLIB
     Route: 065
     Dates: start: 202412
  3. RIBOCICLIB [Suspect]
     Active Substance: RIBOCICLIB
     Route: 065
     Dates: start: 20240727
  4. RIBOCICLIB [Suspect]
     Active Substance: RIBOCICLIB
     Route: 065
     Dates: start: 20241111, end: 20241206
  5. LETROZOLE [Concomitant]
     Active Substance: LETROZOLE
     Indication: Product used for unknown indication
     Route: 065
     Dates: start: 20240727
  6. Calcimed [Concomitant]
     Indication: Product used for unknown indication
     Route: 065
     Dates: start: 20240727
  7. ATORVASTATIN [Concomitant]
     Active Substance: ATORVASTATIN
     Indication: Product used for unknown indication
     Route: 065
  8. BISOPROLOL [Concomitant]
     Active Substance: BISOPROLOL
     Indication: Product used for unknown indication
     Route: 065

REACTIONS (3)
  - Autoimmune hepatitis [Unknown]
  - Pancytopenia [Recovered/Resolved]
  - Therapeutic response decreased [Unknown]

NARRATIVE: CASE EVENT DATE: 20240823
